FAERS Safety Report 7560075-8 (Version None)
Quarter: 2011Q2

REPORT INFORMATION
  Report Type: 
  Country: None (occurrence: None)
  Receive Date: 20110621
  Receipt Date: 20110614
  Transmission Date: 20111010
  Serious: Yes (Hospitalization, Other)
  Sender: FDA-Public Use
  Company Number: US-ABBOTT-11P-163-0731988-00

PATIENT
  Sex: Male
  Weight: 90.8 kg

DRUGS (21)
  1. PROPRANOLOL [Concomitant]
     Indication: HEART RATE INCREASED
  2. ZYRTEC [Concomitant]
     Indication: HYPERSENSITIVITY
  3. ASPIRIN [Concomitant]
     Indication: PRODUCT USED FOR UNKNOWN INDICATION
  4. MULTIPLE VITAMINS [Concomitant]
     Indication: VITAMIN SUPPLEMENTATION
  5. OMEPRAZOLE [Concomitant]
     Indication: GASTROOESOPHAGEAL REFLUX DISEASE
  6. LEXAPRO [Concomitant]
     Indication: DEPRESSION
  7. FOLIC ACID [Concomitant]
     Indication: VITAMIN SUPPLEMENTATION
  8. SIMVASTATIN [Concomitant]
     Indication: BLOOD CHOLESTEROL INCREASED
     Route: 048
  9. REQUIP [Concomitant]
     Indication: RESTLESS LEGS SYNDROME
     Dosage: 1 IN 1 DAY, AT BEDTIME
  10. HUMIRA [Suspect]
     Dates: end: 20110101
  11. AUGMENTIN '125' [Suspect]
     Indication: SINUSITIS
     Dates: start: 20101201
  12. FISH OIL [Concomitant]
     Indication: SUPPLEMENTATION THERAPY
  13. HUMIRA [Suspect]
     Indication: PSORIATIC ARTHROPATHY
     Route: 058
     Dates: start: 20110501
  14. NAPROXEN [Concomitant]
     Indication: COSTOCHONDRITIS
  15. DURAGESIC-100 [Concomitant]
     Indication: PAIN
     Dosage: 1 IN 2 DAYS, PATCH
     Route: 062
  16. ZITHROMAX [Suspect]
     Indication: SINUSITIS
  17. FEXOFENADINE [Concomitant]
     Indication: SEASONAL ALLERGY
  18. CALCIUM CARBONATE [Concomitant]
     Indication: MINERAL SUPPLEMENTATION
  19. METHOTREXATE [Concomitant]
     Indication: PSORIATIC ARTHROPATHY
     Dosage: 8 TABS ONCE A WEEK
     Route: 048
  20. CLONAZEPAM [Concomitant]
     Indication: RESTLESS LEGS SYNDROME
     Dosage: QHS
     Route: 048
  21. ANDROGEL [Concomitant]
     Indication: PRODUCT USED FOR UNKNOWN INDICATION

REACTIONS (4)
  - SINUSITIS [None]
  - LOSS OF CONSCIOUSNESS [None]
  - SEPSIS [None]
  - CLOSTRIDIAL INFECTION [None]
